FAERS Safety Report 20673238 (Version 1)
Quarter: 2022Q2

REPORT INFORMATION
  Report Type: Spontaneous
  Country: US (occurrence: None)
  Receive Date: 20220403
  Receipt Date: 20220403
  Transmission Date: 20220720
  Serious: Yes (Hospitalization)
  Sender: FDA-Public Use
  Company Number: None

PATIENT
  Age: 74 Year
  Sex: Male
  Weight: 100 kg

DRUGS (1)
  1. APIXABAN [Suspect]
     Active Substance: APIXABAN
     Indication: Atrial fibrillation
     Dosage: FREQUENCY : TWICE A DAY;?
     Route: 048
     Dates: start: 20200327

REACTIONS (5)
  - Abdominal pain [None]
  - Nausea [None]
  - Vomiting [None]
  - Abdominal wall haematoma [None]
  - Therapy cessation [None]

NARRATIVE: CASE EVENT DATE: 20211201
